FAERS Safety Report 13276580 (Version 1)
Quarter: 2017Q1

REPORT INFORMATION
  Report Type: Spontaneous
  Country: US (occurrence: US)
  Receive Date: 20170228
  Receipt Date: 20170228
  Transmission Date: 20170428
  Serious: Yes (Hospitalization)
  Sender: FDA-Public Use
  Company Number: None

PATIENT
  Age: 66 Year
  Sex: Male

DRUGS (1)
  1. GLIMEPIRIDE. [Suspect]
     Active Substance: GLIMEPIRIDE

REACTIONS (4)
  - Confusional state [None]
  - Dysarthria [None]
  - Restlessness [None]
  - Hypoglycaemia [None]

NARRATIVE: CASE EVENT DATE: 20160920
